FAERS Safety Report 21340165 (Version 3)
Quarter: 2022Q3

REPORT INFORMATION
  Report Type: Report from Study
  Country: BR (occurrence: BR)
  Receive Date: 20220916
  Receipt Date: 20220923
  Transmission Date: 20221027
  Serious: Yes (Life-Threatening, Hospitalization, Other)
  Sender: FDA-Public Use
  Company Number: BR-JNJFOC-20220609145

PATIENT
  Age: 69 Year
  Sex: Female
  Weight: 40.8 kg

DRUGS (18)
  1. CARFILZOMIB [Suspect]
     Active Substance: CARFILZOMIB
     Indication: Plasma cell myeloma
     Dosage: 93.8 MILLIGRAM, QWK
     Route: 042
     Dates: start: 20220510, end: 20220609
  2. DARATUMUMAB [Suspect]
     Active Substance: DARATUMUMAB
     Indication: Plasma cell myeloma
     Dosage: UNK
     Route: 058
  3. DEXAMETHASONE [Concomitant]
     Active Substance: DEXAMETHASONE
     Indication: Plasma cell myeloma
     Dosage: 40 MILLIGRAM, QWK
     Route: 042
     Dates: start: 20220510
  4. CARVEDILOL [Concomitant]
     Active Substance: CARVEDILOL
     Indication: Cardiac failure
     Dosage: 6.25 MILLIGRAM
     Route: 065
     Dates: start: 20220601
  5. LOPERAMIDE [Concomitant]
     Active Substance: LOPERAMIDE
     Indication: Renal impairment
     Dosage: 4 MILLIGRAM
     Route: 065
     Dates: start: 20220601
  6. SACCHAROMYCES CEREVISIAE [Concomitant]
     Active Substance: SACCHAROMYCES CEREVISIAE
     Indication: Renal impairment
     Dosage: 100 MILLIGRAM
     Route: 065
     Dates: start: 20220601
  7. BORTEZOMIB [Concomitant]
     Active Substance: BORTEZOMIB
     Indication: Renal impairment
     Dosage: 1.3 MILLIGRAM/SQ. METER
     Route: 058
     Dates: start: 20220601, end: 20220601
  8. ACETAMINOPHEN [Concomitant]
     Active Substance: ACETAMINOPHEN
     Indication: Spinal pain
     Dosage: 500 MILLIGRAM
     Route: 048
     Dates: start: 20211227
  9. CODEINE [Concomitant]
     Active Substance: CODEINE
     Indication: Spinal pain
     Dosage: 30 MILLIGRAM
     Route: 048
     Dates: start: 20211227
  10. DIPYRONE [Concomitant]
     Active Substance: DIPYRONE
     Indication: Spinal pain
     Dosage: 1 GRAM
     Route: 048
     Dates: start: 20211227
  11. BACTRIM [Concomitant]
     Active Substance: SULFAMETHOXAZOLE\TRIMETHOPRIM
     Indication: Prophylaxis
     Dosage: 480 MILLIGRAM, QWK
     Route: 065
     Dates: start: 20220510
  12. BACTRIM [Concomitant]
     Active Substance: SULFAMETHOXAZOLE\TRIMETHOPRIM
     Dosage: 480 MILLIGRAM
     Route: 065
     Dates: start: 20220518
  13. ACYCLOVIR [Concomitant]
     Active Substance: ACYCLOVIR
     Indication: Prophylaxis
     Dosage: 200 MILLIGRAM, QD
     Route: 065
     Dates: start: 20220510
  14. ACYCLOVIR [Concomitant]
     Active Substance: ACYCLOVIR
     Dosage: 200 MILLIGRAM, QD
     Route: 065
     Dates: start: 20220518
  15. PANTOPRAZOLE [Concomitant]
     Active Substance: PANTOPRAZOLE
     Indication: Gastrointestinal disorder therapy
     Dosage: 40 MILLIGRAM, QD
     Route: 065
     Dates: start: 20220601
  16. ALLOPURINOL [Concomitant]
     Active Substance: ALLOPURINOL
     Indication: Prophylaxis
     Dosage: 100 MILLIGRAM, QD
     Route: 065
     Dates: start: 20220601
  17. NOREPINEPHRINE [Concomitant]
     Active Substance: NOREPINEPHRINE
     Indication: Cardiac failure
     Dosage: UNK UNK, UNK
     Dates: start: 20220601
  18. NOREPINEPHRINE [Concomitant]
     Active Substance: NOREPINEPHRINE
     Dosage: UNK
     Dates: start: 20220601

REACTIONS (2)
  - Renal impairment [Recovered/Resolved]
  - Diarrhoea [Recovered/Resolved]

NARRATIVE: CASE EVENT DATE: 20220601
